FAERS Safety Report 17146793 (Version 1)
Quarter: 2019Q4

REPORT INFORMATION
  Report Type: Spontaneous
  Country: DE (occurrence: DE)
  Receive Date: 20191212
  Receipt Date: 20191212
  Transmission Date: 20200122
  Serious: Yes (Other)
  Sender: FDA-Public Use
  Company Number: NVSC2019DE016577

PATIENT
  Sex: Male
  Weight: 16.7 kg

DRUGS (2)
  1. CANAKINUMAB. [Suspect]
     Active Substance: CANAKINUMAB
     Indication: MUCKLE-WELLS SYNDROME
     Dosage: 2 MG/KG, Q2MO (EVERY 8 WEEKS)
     Route: 058
     Dates: start: 201206
  2. CANAKINUMAB. [Suspect]
     Active Substance: CANAKINUMAB
     Indication: HYPERMETROPIA

REACTIONS (1)
  - Papilloedema [Recovered/Resolved]

NARRATIVE: CASE EVENT DATE: 20121017
